FAERS Safety Report 6817361-6 (Version None)
Quarter: 2010Q3

REPORT INFORMATION
  Report Type: 
  Country: None (occurrence: None)
  Receive Date: 20100706
  Receipt Date: 20100622
  Transmission Date: 20110219
  Serious: Yes (Hospitalization)
  Sender: FDA-Public Use
  Company Number: US-SHIRE-ALL1-2010-03541

PATIENT

DRUGS (2)
  1. PENTASA [Suspect]
     Indication: CROHN'S DISEASE
     Dosage: UNK MG, UNKNOWN
     Route: 048
     Dates: start: 19990101
  2. PENTASA [Suspect]
     Dosage: 2000 MG, (TAKES FOUR 500MG) 2X/DAY:BID
     Route: 048

REACTIONS (4)
  - ADVERSE EVENT [None]
  - HAEMORRHAGE [None]
  - OFF LABEL USE [None]
  - ONYCHOMYCOSIS [None]
